FAERS Safety Report 9743048 (Version 2)
Quarter: 2013Q4

REPORT INFORMATION
  Report Type: Spontaneous
  Country: IL (occurrence: IL)
  Receive Date: 20131210
  Receipt Date: 20131219
  Transmission Date: 20140711
  Serious: Yes (Life-Threatening, Hospitalization, Disabling)
  Sender: FDA-Public Use
  Company Number: IL-B.I. PHARMACEUTICALS,INC./RIDGEFIELD-2013-BI-41172RI

PATIENT
  Age: 78 Year
  Sex: Male
  Weight: 95 kg

DRUGS (5)
  1. PRADAXA [Suspect]
     Indication: ATRIAL FIBRILLATION
     Dosage: 300 MG
     Route: 048
  2. PRADAXA [Suspect]
     Indication: CEREBROVASCULAR ACCIDENT PROPHYLAXIS
  3. ESCITALOPRAM [Concomitant]
     Route: 048
  4. CALCIUM CARBONATE [Concomitant]
     Route: 048
  5. VITAMINE D [Concomitant]
     Route: 048

REACTIONS (3)
  - Fall [Unknown]
  - Haemorrhage intracranial [Not Recovered/Not Resolved]
  - Subdural haematoma [Not Recovered/Not Resolved]
